FAERS Safety Report 9810716 (Version 1)
Quarter: 2014Q1

REPORT INFORMATION
  Report Type: Spontaneous
  Country: US (occurrence: US)
  Receive Date: 20140110
  Receipt Date: 20140110
  Transmission Date: 20141002
  Serious: Yes (Other)
  Sender: FDA-Public Use
  Company Number: US-SANOFI-AVENTIS-2012SA089048

PATIENT
  Age: 83 Year
  Sex: Female

DRUGS (2)
  1. PLAVIX [Suspect]
     Indication: PROPHYLAXIS
     Route: 048
     Dates: start: 2012, end: 2012
  2. ANTI-DIABETICS [Concomitant]
     Indication: DIABETES MELLITUS

REACTIONS (5)
  - Hypersensitivity [Unknown]
  - Lip swelling [Unknown]
  - Pharyngeal oedema [Unknown]
  - Urticaria [Unknown]
  - Wheezing [Unknown]
